FAERS Safety Report 8549445 (Version 2)
Quarter: 2013Q1

REPORT INFORMATION
  Report Type: Report from Study
  Country: VE (occurrence: VE)
  Receive Date: 20120507
  Receipt Date: 20130121
  Transmission Date: 20140127
  Serious: Yes (Hospitalization, Other)
  Sender: FDA-Public Use
  Company Number: VE-ABBOTT-12P-178-0905927-00

PATIENT
  Age: 58 Year
  Sex: Female

DRUGS (1)
  1. HUMIRA 40 MG/ 0.8 ML PRE-FILLED SYRINGE [Suspect]
     Indication: RHEUMATOID ARTHRITIS
     Route: 058
     Dates: start: 20070101, end: 20120115

REACTIONS (6)
  - Cough [Unknown]
  - Pulmonary oedema [Unknown]
  - Lung disorder [Recovering/Resolving]
  - Bronchitis [Recovering/Resolving]
  - Pleural effusion [Recovered/Resolved]
  - Tuberculosis [Recovered/Resolved]
